FAERS Safety Report 7935746-1 (Version None)
Quarter: 2011Q4

REPORT INFORMATION
  Report Type: 
  Country: None (occurrence: None)
  Receive Date: 20111123
  Receipt Date: 20111118
  Transmission Date: 20120403
  Serious: Yes (Other)
  Sender: FDA-Public Use
  Company Number: PHEH2011US009985

PATIENT
  Age: 52 Year
  Sex: Female
  Weight: 70.295 kg

DRUGS (1)
  1. TOBI [Suspect]
     Indication: CYSTIC FIBROSIS
     Dosage: 300 MG, Q12H FOR 28 DAYS
     Dates: start: 20110408

REACTIONS (2)
  - HORDEOLUM [None]
  - HERPES ZOSTER [None]
